FAERS Safety Report 4706025-0 (Version None)
Quarter: 2005Q2

REPORT INFORMATION
  Report Type: 
  Country: None (occurrence: None)
  Receive Date: 20050208
  Receipt Date: 20050208
  Transmission Date: 20051028
  Serious: No
  Sender: FDA-Public Use
  Company Number: None

PATIENT
  Sex: Female

DRUGS (2)
  1. TEGRETOL [Suspect]
     Indication: DYSTONIA
     Dosage: USED MED 2 DAYS
  2. TEGRETOL [Suspect]
     Indication: EPILEPSY
     Dosage: USED MED 2 DAYS

REACTIONS (4)
  - BLOOD PRESSURE INCREASED [None]
  - DIZZINESS [None]
  - PALLOR [None]
  - TREMOR [None]
